FAERS Safety Report 9121560 (Version 1)
Quarter: 2013Q1

REPORT INFORMATION
  Report Type: Spontaneous
  Country: FR (occurrence: FR)
  Receive Date: 20130227
  Receipt Date: 20130227
  Transmission Date: 20140127
  Serious: Yes (Hospitalization, Other)
  Sender: FDA-Public Use
  Company Number: FR-009507513-1302FRA009167

PATIENT
  Age: 42 Year
  Sex: Male

DRUGS (7)
  1. ISENTRESS [Suspect]
     Dosage: 400 MG, BID
     Route: 048
     Dates: start: 20120223, end: 20130125
  2. PREZISTA [Suspect]
     Dosage: 300 MG, BID
     Route: 048
     Dates: start: 20120120, end: 20130125
  3. NORVIR [Suspect]
     Dosage: 100 MG, QD
     Route: 048
     Dates: start: 20120120, end: 20130125
  4. BARACLUDE [Concomitant]
     Dosage: 0.5 MG, QD
     Route: 048
     Dates: start: 20120223
  5. LEVOTHYROX [Concomitant]
     Dosage: 125 MICROGRAM, QD
     Dates: start: 2001
  6. KENZEN [Concomitant]
     Dosage: UNK
     Dates: start: 2006
  7. AMLOR [Concomitant]
     Dosage: 1 UNK, UNK
     Dates: start: 20111130

REACTIONS (1)
  - Pancreatitis acute [Recovering/Resolving]
